FAERS Safety Report 20838706 (Version 1)
Quarter: 2022Q2

REPORT INFORMATION
  Report Type: Spontaneous
  Country: ES (occurrence: ES)
  Receive Date: 20220517
  Receipt Date: 20220517
  Transmission Date: 20220720
  Serious: No
  Sender: FDA-Public Use
  Company Number: None

PATIENT

DRUGS (1)
  1. SOTROVIMAB [Suspect]
     Active Substance: SOTROVIMAB
     Indication: COVID-19 pneumonia
     Dosage: 500 MG (500 MG SINGLE DOSE)
     Route: 042
     Dates: start: 20220129, end: 20220129

REACTIONS (5)
  - Chills [Recovered/Resolved]
  - Chills [Recovered/Resolved]
  - Lip pruritus [Recovered/Resolved]
  - Infusion related reaction [Recovered/Resolved]
  - Malaise [Recovered/Resolved]

NARRATIVE: CASE EVENT DATE: 20220129
